FAERS Safety Report 6599893-1 (Version None)
Quarter: 2010Q1

REPORT INFORMATION
  Report Type: 
  Country: None (occurrence: None)
  Receive Date: 20100217
  Receipt Date: 20100208
  Transmission Date: 20100710
  Serious: Yes (Hospitalization)
  Sender: FDA-Public Use
  Company Number: 2010EU000194

PATIENT
  Age: 30 Month
  Sex: Male
  Weight: 10 kg

DRUGS (6)
  1. PROGRAF [Suspect]
     Indication: RENAL TRANSPLANT
     Dosage: 7 MG, /D, ORAL
     Route: 048
     Dates: start: 20090704, end: 20100204
  2. CELLCEPT [Suspect]
     Indication: RENAL TRANSPLANT
     Dosage: ORAL
     Route: 048
     Dates: start: 20090705, end: 20091201
  3. BACTRIM [Suspect]
     Indication: ANTIFUNGAL PROPHYLAXIS
     Dosage: 10 MG, /D, ORAL
     Route: 048
     Dates: start: 20090705, end: 20091201
  4. PREDNISONE [Concomitant]
  5. ZOVIRAX [Concomitant]
  6. BICARBONATE DE SODIUM AGUETTANT (SODIUM BICARBONATE) [Concomitant]

REACTIONS (3)
  - APLASIA PURE RED CELL [None]
  - APLASTIC ANAEMIA [None]
  - EPSTEIN-BARR VIRUS INFECTION [None]
